FAERS Safety Report 4627349-1 (Version None)
Quarter: 2005Q2

REPORT INFORMATION
  Report Type: 
  Country: None (occurrence: None)
  Receive Date: 20050405
  Receipt Date: 20050217
  Transmission Date: 20051028
  Serious: Yes (Death)
  Sender: FDA-Public Use
  Company Number: 2005S1000589

PATIENT
  Age: 67 Year
  Sex: Male
  Weight: 68.0396 kg

DRUGS (14)
  1. CLOZAPINE [Suspect]
     Indication: SCHIZOPHRENIA
     Dosage: SEE IMAGE
     Route: 048
     Dates: start: 20020601, end: 20050202
  2. CLOZAPINE [Suspect]
     Indication: SCHIZOPHRENIA
     Dosage: SEE IMAGE
     Route: 048
     Dates: start: 20020601, end: 20050202
  3. CALCITONIN-SALMON [Concomitant]
  4. LORAZEPAM [Concomitant]
  5. PARACETAMOL/HYDROCODONE [Concomitant]
  6. BITARTRATE [Concomitant]
  7. PHENYTOIN SODIUM [Concomitant]
  8. LANSOPRAZOLE [Concomitant]
  9. PAROXETINE HYDROCHLORIDE [Concomitant]
  10. MIDODRINE HYDROCHLORIDE [Concomitant]
  11. SELEGILINE HCL [Concomitant]
  12. CARBIDOPA AND LEVODOPA [Concomitant]
  13. MORPHINE 20 MG/ML SOLUTION [Concomitant]
  14. IBUPROFEN [Concomitant]

REACTIONS (1)
  - PARKINSON'S DISEASE [None]
